FAERS Safety Report 9192092 (Version 3)
Quarter: 2013Q2

REPORT INFORMATION
  Report Type: Spontaneous
  Country: TR (occurrence: None)
  Receive Date: 20130325
  Receipt Date: 20130621
  Transmission Date: 20140414
  Serious: Yes (Hospitalization)
  Sender: FDA-Public Use
  Company Number: ACO_34914_2013

PATIENT
  Age: 30 Year
  Sex: Female

DRUGS (4)
  1. FAMPYRA (DALFAMPRIDINE) TABLET, 10MG [Suspect]
     Indication: MULTIPLE SCLEROSIS
     Route: 048
     Dates: start: 201201, end: 20130204
  2. AVONEX (INTERFERON BETA-1A) [Concomitant]
  3. BETAFERON (INTERFERON BETA-1B) [Concomitant]
  4. COPAXONE (GIATIRAMER ACETATE) [Concomitant]

REACTIONS (4)
  - Epilepsy [None]
  - Vertigo [None]
  - Syncope [None]
  - Multiple sclerosis relapse [None]
